FAERS Safety Report 24186296 (Version 4)
Quarter: 2024Q4

REPORT INFORMATION
  Report Type: Spontaneous
  Country: JP (occurrence: JP)
  Receive Date: 20240808
  Receipt Date: 20241223
  Transmission Date: 20250114
  Serious: Yes (Death, Hospitalization)
  Sender: GENMAB
  Company Number: JP-GENMAB-2024-02799

PATIENT
  Age: 77 Year
  Sex: Male

DRUGS (9)
  1. EPKINLY [Suspect]
     Active Substance: EPCORITAMAB-BYSP
     Indication: Diffuse large B-cell lymphoma
     Dosage: 0.16 MILLIGRAM, SINGLE
     Route: 058
     Dates: start: 20240520, end: 20240520
  2. EPKINLY [Suspect]
     Active Substance: EPCORITAMAB-BYSP
     Dosage: 0.8 MILLIGRAM, SINGLE
     Route: 058
     Dates: start: 20240527, end: 20240527
  3. EPKINLY [Suspect]
     Active Substance: EPCORITAMAB-BYSP
     Dosage: 48 MILLIGRAM, WEEKLY
     Route: 058
     Dates: start: 20240603, end: 20240708
  4. CORTICOTROPIN [Concomitant]
     Active Substance: CORTICOTROPIN
     Indication: Prophylaxis
     Dosage: UNK
     Dates: start: 202405, end: 2024
  5. CORTICOTROPIN [Concomitant]
     Active Substance: CORTICOTROPIN
     Indication: Diarrhoea
  6. ACETAMINOPHEN [Concomitant]
     Active Substance: ACETAMINOPHEN
     Indication: Prophylaxis
     Dosage: UNK
     Dates: start: 202405, end: 2024
  7. ANTIHISTAMINES NOS [Concomitant]
     Active Substance: ANTIHISTAMINES NOS
     Indication: Prophylaxis
     Dosage: UNK
     Dates: start: 202405, end: 2024
  8. UNSPECIFIED INGREDIENT [Concomitant]
     Active Substance: UNSPECIFIED INGREDIENT
     Dosage: UNK, ADMINISTERED CONTINUOUSLY BEFORE THE ADMINISTRATION OF EPKINLY
     Dates: end: 2024
  9. UNSPECIFIED INGREDIENT [Concomitant]
     Active Substance: UNSPECIFIED INGREDIENT
     Dosage: UNK, ADMINISTERED CONTINUOUSLY BEFORE THE ADMINISTRATION OF EPKINLY
     Dates: end: 2024

REACTIONS (3)
  - Liver disorder [Fatal]
  - Dermatitis [Recovered/Resolved]
  - Diarrhoea [Not Recovered/Not Resolved]

NARRATIVE: CASE EVENT DATE: 20240101
